FAERS Safety Report 25488017 (Version 1)
Quarter: 2025Q2

REPORT INFORMATION
  Report Type: Spontaneous
  Country: US (occurrence: US)
  Receive Date: 20250627
  Receipt Date: 20250627
  Transmission Date: 20250716
  Serious: No
  Sender: BRISTOL-MYERS SQUIBB COMPANY
  Company Number: US-BRISTOL-MYERS SQUIBB COMPANY-2025-091379

PATIENT
  Age: 71 Year
  Sex: Male

DRUGS (2)
  1. OPDIVO QVANTIG [Suspect]
     Active Substance: HYALURONIDASE-NVHY\NIVOLUMAB
     Indication: Neuroendocrine carcinoma of the skin
     Route: 058
     Dates: start: 202506, end: 202506
  2. ASPIRIN [Suspect]
     Active Substance: ASPIRIN
     Indication: Cardiovascular disorder

REACTIONS (2)
  - Injection site bruising [Unknown]
  - Off label use [Unknown]

NARRATIVE: CASE EVENT DATE: 20250601
